FAERS Safety Report 9039234 (Version 1)
Quarter: 2013Q1

REPORT INFORMATION
  Report Type: Report from Study
  Country: US (occurrence: US)
  Receive Date: 20130129
  Receipt Date: 20130129
  Transmission Date: 20140127
  Serious: No
  Sender: FDA-Public Use
  Company Number: US-ABBOTT-12P-163-0918130-00

PATIENT
  Age: 34 Year
  Sex: Female

DRUGS (13)
  1. HUMIRA 40 MG/ 0.8 ML PRE-FILLED SYRINGE [Suspect]
     Indication: RHEUMATOID ARTHRITIS
     Dates: start: 20120301
  2. CELLCEPT [Concomitant]
     Indication: BEHCET^S SYNDROME
  3. COLCHICINE [Concomitant]
     Indication: BEHCET^S SYNDROME
  4. TOPROL ER [Concomitant]
     Indication: TACHYCARDIA
     Dosage: 200 MG, 1 1/2 IN 1
  5. SEASONIQUE [Concomitant]
     Indication: CONTRACEPTION
  6. LAMICTAL [Concomitant]
     Indication: AFFECTIVE DISORDER
     Dosage: 100 MG, 2 1/2 IN 1 D
  7. LAMICTAL [Concomitant]
     Dates: start: 201203
  8. DEXTROAMPHETAMINE [Concomitant]
     Indication: NARCOLEPSY
  9. EMSAM PATCH [Concomitant]
     Indication: NARCOLEPSY
  10. BACTRIM DS [Concomitant]
     Indication: PROPHYLAXIS
     Dosage: 800/160 MG, 1 IN 1 D
     Dates: end: 20120413
  11. BACTRIM DS [Concomitant]
     Indication: INFECTION
  12. MOBIC [Concomitant]
     Indication: PRODUCT USED FOR UNKNOWN INDICATION
  13. PLAQUENIL [Concomitant]
     Indication: PRODUCT USED FOR UNKNOWN INDICATION

REACTIONS (9)
  - Musculoskeletal stiffness [Recovering/Resolving]
  - Panic attack [Recovered/Resolved]
  - Injection site pain [Not Recovered/Not Resolved]
  - Injection site pain [Not Recovered/Not Resolved]
  - Headache [Not Recovered/Not Resolved]
  - Nausea [Recovered/Resolved]
  - Diarrhoea [Recovered/Resolved]
  - Injection site haemorrhage [Recovered/Resolved]
  - Injection site pain [Recovered/Resolved]
